FAERS Safety Report 5309883-4 (Version None)
Quarter: 2007Q2

REPORT INFORMATION
  Report Type: 
  Country: None (occurrence: None)
  Receive Date: 20070427
  Receipt Date: 20070417
  Transmission Date: 20071010
  Serious: No
  Sender: FDA-Public Use
  Company Number: US-ELI_LILLY_AND_COMPANY-US200703000190

PATIENT
  Sex: Female

DRUGS (4)
  1. ALIMTA [Suspect]
     Dosage: UNK, UNK
     Route: 042
  2. CISPLATIN [Concomitant]
  3. VITAMIN B12 NOS [Concomitant]
     Indication: VITAMIN SUPPLEMENTATION
  4. FOLIC ACID [Concomitant]
     Indication: VITAMIN SUPPLEMENTATION

REACTIONS (1)
  - NO ADVERSE EFFECT [None]
